FAERS Safety Report 16329668 (Version 1)
Quarter: 2019Q2

REPORT INFORMATION
  Report Type: Spontaneous
  Country: US (occurrence: US)
  Receive Date: 20190520
  Receipt Date: 20190520
  Transmission Date: 20190711
  Serious: No
  Sender: FDA-Public Use
  Company Number: US-BIOGEN-2019BI00738646

PATIENT
  Sex: Female

DRUGS (1)
  1. TECFIDERA [Suspect]
     Active Substance: DIMETHYL FUMARATE
     Indication: MULTIPLE SCLEROSIS
     Route: 048
     Dates: start: 20140218

REACTIONS (7)
  - Insomnia [Unknown]
  - Fatigue [Unknown]
  - Anxiety [Unknown]
  - Body temperature increased [Unknown]
  - Migraine [Unknown]
  - Malaise [Unknown]
  - Confusional state [Unknown]
